FAERS Safety Report 7605198-X (Version None)
Quarter: 2011Q3

REPORT INFORMATION
  Report Type: 
  Country: None (occurrence: None)
  Receive Date: 20110705
  Receipt Date: 20110629
  Transmission Date: 20111222
  Serious: Yes (Other)
  Sender: FDA-Public Use
  Company Number: VISP-NO-1106S-0236

PATIENT
  Age: 35 Year
  Sex: Female

DRUGS (2)
  1. VISIPAQUE [Suspect]
     Indication: PRODUCT USED FOR UNKNOWN INDICATION
     Dosage: SINGLE DOSE, INTRAVENOUS
     Route: 042
     Dates: start: 20110429, end: 20110429
  2. LIXIDOL (KETIROLAC TROMETHAMINE) [Concomitant]

REACTIONS (4)
  - CHEST INJURY [None]
  - POST-TRAUMATIC NECK SYNDROME [None]
  - ABDOMINAL INJURY [None]
  - ROAD TRAFFIC ACCIDENT [None]
